FAERS Safety Report 6651420-6 (Version None)
Quarter: 2010Q1

REPORT INFORMATION
  Report Type: 
  Country: None (occurrence: None)
  Receive Date: 20100325
  Receipt Date: 20100311
  Transmission Date: 20100710
  Serious: Yes (Death, Other)
  Sender: FDA-Public Use
  Company Number: CN-ELI_LILLY_AND_COMPANY-CN201003003060

PATIENT
  Sex: Female

DRUGS (3)
  1. OLANZAPINE [Suspect]
     Indication: HALLUCINATION
     Dosage: 1.25 MG, EACH EVENING
     Route: 048
     Dates: start: 20100306, end: 20100301
  2. OLANZAPINE [Suspect]
     Dosage: 1.25 MG, 2/D
     Route: 048
     Dates: start: 20100309
  3. DIAZEPAM [Concomitant]
     Indication: HALLUCINATION
     Dosage: 10 MG, UNK
     Route: 030
     Dates: start: 20100309

REACTIONS (3)
  - CARDIO-RESPIRATORY ARREST [None]
  - DEATH [None]
  - OFF LABEL USE [None]
